FAERS Safety Report 10985580 (Version 1)
Quarter: 2015Q1

REPORT INFORMATION
  Report Type: Spontaneous
  Country: US (occurrence: None)
  Receive Date: 20150304
  Receipt Date: 20150304
  Transmission Date: 20150721
  Serious: Yes (Other)
  Sender: FDA-Public Use
  Company Number: 2014GMK012653

PATIENT
  Age: 63 Year
  Sex: Female

DRUGS (2)
  1. MONTELUKAST [Suspect]
     Active Substance: MONTELUKAST SODIUM
     Indication: ASTHMA
  2. FLUTICASONE [Concomitant]
     Active Substance: FLUTICASONE\FLUTICASONE PROPIONATE

REACTIONS (6)
  - Allergic granulomatous angiitis [None]
  - Neuralgia [None]
  - Muscular weakness [None]
  - Eosinophilia [None]
  - Leukocytosis [None]
  - Wheezing [None]

NARRATIVE: CASE EVENT DATE: 199805
